FAERS Safety Report 11265168 (Version 1)
Quarter: 2015Q3

REPORT INFORMATION
  Report Type: Spontaneous
  Country: AT (occurrence: AT)
  Receive Date: 20150713
  Receipt Date: 20150713
  Transmission Date: 20151125
  Serious: Yes (Hospitalization)
  Sender: FDA-Public Use
  Company Number: AT-ABBVIE-15P-009-1421550-00

PATIENT
  Sex: Female

DRUGS (1)
  1. DUODOPA [Suspect]
     Active Substance: CARBIDOPA\LEVODOPA
     Indication: PARKINSON^S DISEASE
     Dosage: MD: 7.5 ML, ED: 1 ML, CR: 2.7 ML/H, 16 HRS/DAY
     Route: 065
     Dates: start: 20150617

REACTIONS (3)
  - Nasopharyngitis [Not Recovered/Not Resolved]
  - Device dislocation [Not Recovered/Not Resolved]
  - Bronchitis bacterial [Not Recovered/Not Resolved]
